FAERS Safety Report 7058030-X (Version None)
Quarter: 2010Q4

REPORT INFORMATION
  Report Type: 
  Country: None (occurrence: None)
  Receive Date: 20101022
  Receipt Date: 20101014
  Transmission Date: 20110411
  Serious: Yes (Other)
  Sender: FDA-Public Use
  Company Number: US-JNJFOC-20101004173

PATIENT
  Sex: Female
  Weight: 52.16 kg

DRUGS (3)
  1. RISPERIDONE [Suspect]
     Indication: PRODUCT USED FOR UNKNOWN INDICATION
     Route: 048
  2. RISPERIDONE [Suspect]
     Route: 048
  3. RISPERIDONE [Suspect]
     Route: 048

REACTIONS (3)
  - DELUSION [None]
  - DISORIENTATION [None]
  - TREATMENT NONCOMPLIANCE [None]
